FAERS Safety Report 7058749-0 (Version None)
Quarter: 2010Q4

REPORT INFORMATION
  Report Type: 
  Country: None (occurrence: None)
  Receive Date: 20101022
  Receipt Date: 20101022
  Transmission Date: 20110411
  Serious: Yes (Life-Threatening, Other)
  Sender: FDA-Public Use
  Company Number: AU-WYE-G06836210

PATIENT
  Sex: Female
  Weight: 98 kg

DRUGS (2)
  1. PRISTIQ [Suspect]
     Indication: MAJOR DEPRESSION
     Dosage: 50MG
     Route: 048
     Dates: start: 20100810, end: 20100824
  2. YAZ [Concomitant]
     Indication: ORAL CONTRACEPTION
     Dosage: 1 TABLET DAILY
     Route: 048

REACTIONS (4)
  - DIZZINESS [None]
  - FEAR [None]
  - SUICIDAL IDEATION [None]
  - UNEVALUABLE EVENT [None]
